FAERS Safety Report 22157263 (Version 3)
Quarter: 2023Q2

REPORT INFORMATION
  Report Type: Report from Study
  Country: CH (occurrence: CH)
  Receive Date: 20230330
  Receipt Date: 20230418
  Transmission Date: 20230722
  Serious: Yes (Hospitalization)
  Sender: FDA-Public Use
  Company Number: CH-ABBVIE-4707938

PATIENT
  Age: 39 Year
  Sex: Male
  Weight: 88 kg

DRUGS (7)
  1. SKYRIZI [Suspect]
     Active Substance: RISANKIZUMAB-RZAA
     Indication: Psoriasis
     Route: 058
     Dates: start: 20210224
  2. Redoxon [Concomitant]
     Indication: Product used for unknown indication
     Dosage: FREQUENCY?TEXT: 1-0-1 (FOR 3 MONTHS)
     Route: 048
     Dates: start: 20230203
  3. FRAGMIN [Concomitant]
     Active Substance: DALTEPARIN SODIUM
     Indication: Thrombosis prophylaxis
     Route: 058
     Dates: start: 20220825, end: 20220831
  4. Ascorbic acid (Vitamin C, Redoxon, orange Sugarfree) [Concomitant]
     Indication: Product used for unknown indication
     Route: 048
     Dates: start: 20230203
  5. XARELTO [Concomitant]
     Active Substance: RIVAROXABAN
     Indication: Thrombosis prophylaxis
     Dosage: FREQUENCY TEXT: FOR 6 WEEKS
     Route: 048
     Dates: start: 20220901, end: 20230317
  6. Diclofenac (Voltaren) [Concomitant]
     Indication: Product used for unknown indication
     Dosage: FREQUENCY TEXT: 1-1-1 (FOR 10 DAYS, THEN?TAPER OFF)
     Route: 048
     Dates: start: 20230203, end: 20230213
  7. DAFALGAN [Concomitant]
     Active Substance: ACETAMINOPHEN
     Indication: Product used for unknown indication
     Dosage: FREQUENCY TEXT: 2-2-2-2 (FOR 10 DAYS,?THEN TAPER OFF)
     Route: 048
     Dates: start: 20230203, end: 20230213

REACTIONS (7)
  - Ligament injury [Recovered/Resolved]
  - Subcutaneous emphysema [Unknown]
  - Sports injury [Recovered/Resolved]
  - Pain [Unknown]
  - Articular calcification [Unknown]
  - Joint effusion [Unknown]
  - Thrombosis prophylaxis [Unknown]

NARRATIVE: CASE EVENT DATE: 20220824
